FAERS Safety Report 9216380 (Version 2)
Quarter: 2013Q2

REPORT INFORMATION
  Report Type: Report from Study
  Country: BR (occurrence: BR)
  Receive Date: 20130408
  Receipt Date: 20130510
  Transmission Date: 20140414
  Serious: Yes (Other)
  Sender: FDA-Public Use
  Company Number: PHHY2013BR033556

PATIENT
  Sex: Female

DRUGS (4)
  1. FORASEQ [Suspect]
     Indication: ASTHMA
     Dosage: 2 DF (12/400 UG), 1 CAPSULE AT MORNING AND 1 AT NIGHT.
     Dates: start: 2002
  2. ENALAPRIL [Concomitant]
     Indication: BLOOD PRESSURE
     Dosage: 2 DF (10 MG), AT MORNING AND AT NIGHT
     Route: 048
  3. AAS [Concomitant]
     Dosage: 1 DF (5 MG), DAILY
     Route: 048
  4. METFORMIN [Concomitant]
     Indication: BLOOD GLUCOSE
     Dosage: 1 DF (850 MG), AT MORNING
     Route: 048

REACTIONS (7)
  - Cataract [Not Recovered/Not Resolved]
  - Glaucoma [Not Recovered/Not Resolved]
  - Intraocular pressure increased [Not Recovered/Not Resolved]
  - Headache [Not Recovered/Not Resolved]
  - Eye pain [Not Recovered/Not Resolved]
  - Colour blindness acquired [Not Recovered/Not Resolved]
  - Tremor [Recovering/Resolving]
